FAERS Safety Report 7606860-5 (Version None)
Quarter: 2011Q3

REPORT INFORMATION
  Report Type: 
  Country: None (occurrence: None)
  Receive Date: 20110713
  Receipt Date: 20110704
  Transmission Date: 20111222
  Serious: Yes (Death)
  Sender: FDA-Public Use
  Company Number: JP-GLAXOSMITHKLINE-B0318650A

PATIENT
  Sex: Male
  Weight: 23 kg

DRUGS (13)
  1. SANDIMMUNE [Suspect]
     Dosage: 60MG PER DAY
     Route: 065
     Dates: start: 20030618, end: 20030625
  2. FLUDARABINE PHOSPHATE [Concomitant]
     Indication: CORD BLOOD TRANSPLANT THERAPY
     Dosage: 30MGM2 PER DAY
     Dates: start: 20030613, end: 20030616
  3. NEUTROGIN [Concomitant]
     Dosage: 100MCG PER DAY
     Dates: start: 20030620, end: 20030711
  4. PREDNISOLONE [Concomitant]
     Dosage: 30MG PER DAY
     Dates: start: 20030630, end: 20030711
  5. CARBENIN [Concomitant]
     Dosage: 2G PER DAY
     Route: 042
     Dates: start: 20030620, end: 20030711
  6. TOTAL BODY IRRADIATION [Concomitant]
  7. ALKERAN [Suspect]
     Indication: CORD BLOOD TRANSPLANT THERAPY
     Dosage: 140MGM2 PER DAY
     Route: 042
     Dates: start: 20030617
  8. VANCOMYCIN [Concomitant]
     Dosage: 800MG PER DAY
     Route: 042
     Dates: start: 20030623, end: 20030711
  9. ZOVIRAX [Concomitant]
     Dosage: 400MG PER DAY
     Route: 042
     Dates: start: 20030625, end: 20030711
  10. TACROLIMUS [Concomitant]
     Dosage: .6MG PER DAY
     Dates: start: 20030626, end: 20030711
  11. ROCEPHIN [Concomitant]
     Dosage: 2G PER DAY
     Route: 042
     Dates: start: 20030616, end: 20030619
  12. DIFLUCAN [Concomitant]
     Dosage: 200MG PER DAY
     Route: 042
     Dates: start: 20030619, end: 20030711
  13. METHYLPREDNISOLONE [Concomitant]
     Dosage: 10MG PER DAY
     Dates: start: 20030624, end: 20030629

REACTIONS (8)
  - DISORIENTATION [None]
  - CARDIAC FAILURE [None]
  - ARRHYTHMIA [None]
  - ABDOMINAL PAIN [None]
  - FACE OEDEMA [None]
  - ASCITES [None]
  - VOMITING [None]
  - COUGH [None]
